FAERS Safety Report 9467090 (Version 1)
Quarter: 2013Q3

REPORT INFORMATION
  Report Type: Spontaneous
  Country: US (occurrence: US)
  Receive Date: 20130820
  Receipt Date: 20130820
  Transmission Date: 20140515
  Serious: Yes (Hospitalization, Other)
  Sender: FDA-Public Use
  Company Number: US-ROCHE-1261872

PATIENT
  Age: 43 Year
  Sex: Female

DRUGS (1)
  1. DIAZEPAM [Suspect]
     Indication: PRODUCT USED FOR UNKNOWN INDICATION
     Dosage: 40 TO 50
     Route: 065

REACTIONS (3)
  - Leukoencephalopathy [Recovering/Resolving]
  - Intentional overdose [Unknown]
  - Pneumonia aspiration [Recovered/Resolved]
